FAERS Safety Report 4422582-6 (Version None)
Quarter: 2004Q3

REPORT INFORMATION
  Report Type: 
  Country: None (occurrence: None)
  Receive Date: 20040713
  Receipt Date: 20030617
  Transmission Date: 20050211
  Serious: No
  Sender: FDA-Public Use
  Company Number: PHEH2003US05179

PATIENT
  Sex: 0

DRUGS (1)
  1. ELIDEL [Suspect]
     Indication: SKIN IRRITATION
     Dosage: TOPICAL
     Route: 061

REACTIONS (2)
  - COUGH [None]
  - RASH PRURITIC [None]
